FAERS Safety Report 4320831-6 (Version None)
Quarter: 2004Q1

REPORT INFORMATION
  Report Type: 
  Country: None (occurrence: None)
  Receive Date: 20040315
  Receipt Date: 20030304
  Transmission Date: 20041129
  Serious: Yes (Other)
  Sender: FDA-Public Use
  Company Number: PHEH2003US01993

PATIENT
  Age: 35 Year
  Sex: Male
  Weight: 72.6 kg

DRUGS (1)
  1. TRILEPTAL [Suspect]
     Indication: BIPOLAR DISORDER
     Dosage: 300 MG, QID, ORAL
     Route: 048
     Dates: start: 20021201

REACTIONS (1)
  - HAEMATURIA [None]
